FAERS Safety Report 14598843 (Version 1)
Quarter: 2018Q1

REPORT INFORMATION
  Report Type: Spontaneous
  Country: BR (occurrence: BR)
  Receive Date: 20180305
  Receipt Date: 20180305
  Transmission Date: 20180509
  Serious: Yes (Disabling, Other)
  Sender: FDA-Public Use
  Company Number: BR-ABBVIE-18K-020-2273284-00

PATIENT
  Sex: Female

DRUGS (1)
  1. HUMIRA [Suspect]
     Active Substance: ADALIMUMAB
     Indication: ANKYLOSING SPONDYLITIS
     Route: 058

REACTIONS (8)
  - Anger [Unknown]
  - Drug ineffective [Unknown]
  - Depressed mood [Unknown]
  - Pain [Unknown]
  - Gait inability [Unknown]
  - Fibromyalgia [Unknown]
  - Ankylosing spondylitis [Unknown]
  - Crying [Unknown]
